FAERS Safety Report 6163716-5 (Version None)
Quarter: 2009Q2

REPORT INFORMATION
  Report Type: 
  Country: None (occurrence: None)
  Receive Date: 20090422
  Receipt Date: 20090415
  Transmission Date: 20091009
  Serious: Yes (Other)
  Sender: FDA-Public Use
  Company Number: US-JNJFOC-20090404177

PATIENT
  Age: 58 Year
  Sex: Female
  Weight: 72.58 kg

DRUGS (2)
  1. EXTRA STRENGTH TYLENOL [Suspect]
     Route: 048
  2. EXTRA STRENGTH TYLENOL [Suspect]
     Indication: HEADACHE
     Dosage: 1000 MG EVERY 4-6 HOURS FOR NO MORE THAN 3 CONSECUTIVE DAYS WHEN NECESSARY
     Route: 048

REACTIONS (2)
  - HEPATIC ENZYME INCREASED [None]
  - LIVER INJURY [None]
